FAERS Safety Report 5421898-4 (Version None)
Quarter: 2007Q3

REPORT INFORMATION
  Report Type: 
  Country: None (occurrence: None)
  Receive Date: 20070730
  Receipt Date: 20070308
  Transmission Date: 20080115
  Serious: Yes (Life-Threatening)
  Sender: FDA-Public Use
  Company Number: 1999-11-0279

PATIENT
  Age: 17 Year
  Sex: Male
  Weight: 74.3899 kg

DRUGS (3)
  1. REBETOL [Suspect]
     Indication: HEPATITIS C
     Dosage: 1200 MG;QD;PO
     Route: 048
     Dates: start: 19991008, end: 19991030
  2. INTRON A [Suspect]
     Indication: HEPATITIS C
     Dosage: 3 MIU;TIW;SC
     Route: 058
     Dates: start: 19991008, end: 19991030
  3. CELEXA [Concomitant]

REACTIONS (1)
  - SUICIDE ATTEMPT [None]
